FAERS Safety Report 4426775-3 (Version None)
Quarter: 2004Q3

REPORT INFORMATION
  Report Type: 
  Country: None (occurrence: None)
  Receive Date: 20040812
  Receipt Date: 20040812
  Transmission Date: 20050211
  Serious: Yes (Hospitalization)
  Sender: FDA-Public Use
  Company Number: None

PATIENT
  Age: 60 Year
  Sex: Male
  Weight: 94.5 kg

DRUGS (7)
  1. ASPIRIN [Suspect]
     Indication: CEREBROVASCULAR ACCIDENT
     Dosage: 81NG  DAILY  ORAL
     Route: 048
  2. CLOPIDOGREL [Suspect]
     Dosage: 75 MG   DAILY   ORAL
     Route: 048
  3. ATENOLOL [Concomitant]
  4. DOCUSATE NA [Concomitant]
  5. FERROUS SULFATE TAB [Concomitant]
  6. HYDROCHLOROTHIAZIDE/TRIAMTERENE [Concomitant]
  7. LOVASTATIN [Concomitant]

REACTIONS (7)
  - DUODENITIS [None]
  - FAECES DISCOLOURED [None]
  - GASTROINTESTINAL ULCER [None]
  - HAEMATEMESIS [None]
  - HYPOTENSION [None]
  - MELAENA [None]
  - THROMBOSIS [None]
